FAERS Safety Report 8417610-7 (Version None)
Quarter: 2012Q2

REPORT INFORMATION
  Report Type: 
  Country: None (occurrence: None)
  Receive Date: 20120606
  Receipt Date: 20120529
  Transmission Date: 20120825
  Serious: Yes (Other)
  Sender: FDA-Public Use
  Company Number: BR-ABBOTT-12P-020-0937721-00

PATIENT
  Sex: Female
  Weight: 64 kg

DRUGS (10)
  1. ESTRADIOL [Concomitant]
     Indication: HORMONE THERAPY
  2. FAMOTIDINE [Concomitant]
     Indication: ANKYLOSING SPONDYLITIS
  3. CLONAZEPAM [Concomitant]
     Indication: ANTIDEPRESSANT THERAPY
  4. METHOTREXATE [Concomitant]
     Indication: ANKYLOSING SPONDYLITIS
  5. CARISOPRODOL [Concomitant]
     Indication: ANKYLOSING SPONDYLITIS
  6. FOLIC ACID [Concomitant]
     Indication: ANKYLOSING SPONDYLITIS
  7. HUMIRA [Suspect]
     Indication: ANKYLOSING SPONDYLITIS
     Route: 058
     Dates: start: 20090301
  8. SERTRALINE HYDROCHLORIDE [Concomitant]
     Indication: ANTIDEPRESSANT THERAPY
     Dates: start: 20120422
  9. TORAGESIC [Concomitant]
     Indication: PAIN
  10. CYCLOBENZAPRINE [Concomitant]
     Indication: ANKYLOSING SPONDYLITIS

REACTIONS (4)
  - DEPRESSION [None]
  - UPPER EXTREMITY MASS [None]
  - INFLAMMATION [None]
  - PYREXIA [None]
